FAERS Safety Report 22320152 (Version 1)
Quarter: 2023Q2

REPORT INFORMATION
  Report Type: Spontaneous
  Country: SE (occurrence: SE)
  Receive Date: 20230515
  Receipt Date: 20230515
  Transmission Date: 20230721
  Serious: Yes (Other)
  Sender: FDA-Public Use
  Company Number: None

PATIENT
  Age: 69 Year
  Sex: Female

DRUGS (5)
  1. VANCOMYCIN [Suspect]
     Active Substance: VANCOMYCIN
     Indication: Clostridial infection
     Route: 065
  2. ASPIRIN [Concomitant]
     Active Substance: ASPIRIN
     Indication: Product used for unknown indication
  3. ENALAPRIL [Concomitant]
     Active Substance: ENALAPRIL
     Indication: Product used for unknown indication
     Dosage: FOR ACTIVE INGREDIENT ENALAPRIL THE STRENGTH IS 7.64 MILLIGRAMS, FOR ACTIVE INGREDIENT ENALAPRIL MAL
  4. METOPROLOL [Concomitant]
     Active Substance: METOPROLOL
     Indication: Product used for unknown indication
     Dosage: FOR ACTIVE INGREDIENT METOPROLOL TARTRATE THE STRENGTH IS 50 MILLIGRAMS, FOR ACTIVE INGREDIENT METOP
  5. FURIX [Concomitant]
     Indication: Product used for unknown indication
     Route: 065

REACTIONS (1)
  - Angioedema [Recovering/Resolving]

NARRATIVE: CASE EVENT DATE: 20210701
